FAERS Safety Report 15269485 (Version 12)
Quarter: 2022Q4

REPORT INFORMATION
  Report Type: Other
  Country: US (occurrence: None)
  Receive Date: 20180813
  Receipt Date: 20221212
  Transmission Date: 20230113
  Serious: Yes (Other)
  Sender: FDA-Public Use
  Company Number: US-ROCHE-2166552

PATIENT
  Age: 68 Year
  Sex: Female
  Weight: 54.480 kg

DRUGS (6)
  1. OCREVUS [Suspect]
     Active Substance: OCRELIZUMAB
     Indication: Relapsing multiple sclerosis
     Dosage: LAST INFUSION ON 24/DEC/2019
     Route: 042
     Dates: start: 20171002
  2. OCREVUS [Suspect]
     Active Substance: OCRELIZUMAB
     Indication: Relapsing multiple sclerosis
  3. DULOXETINE [Concomitant]
     Active Substance: DULOXETINE
     Indication: Neuralgia
     Route: 048
  4. ATORVASTATIN [Concomitant]
     Active Substance: ATORVASTATIN
     Indication: Blood cholesterol increased
     Route: 048
  5. TRIMETHOPRIM [Concomitant]
     Active Substance: TRIMETHOPRIM
     Route: 048
  6. ADDERALL [Concomitant]
     Active Substance: AMPHETAMINE ASPARTATE\AMPHETAMINE SULFATE\DEXTROAMPHETAMINE SACCHARATE\DEXTROAMPHETAMINE SULFATE
     Route: 048

REACTIONS (12)
  - Salivary gland neoplasm [Recovered/Resolved]
  - Salivary gland cancer [Unknown]
  - Malignant melanoma [Unknown]
  - Lung neoplasm malignant [Unknown]
  - Nerve injury [Not Recovered/Not Resolved]
  - Pain [Unknown]
  - Lymphocyte count decreased [Not Recovered/Not Resolved]
  - Malignant melanoma [Recovered/Resolved]
  - White blood cell count decreased [Unknown]
  - CD8 lymphocytes decreased [Unknown]
  - Urticaria [Unknown]
  - Off label use [Unknown]

NARRATIVE: CASE EVENT DATE: 20180701
